FAERS Safety Report 7465916-0 (Version None)
Quarter: 2011Q2

REPORT INFORMATION
  Report Type: 
  Country: None (occurrence: None)
  Receive Date: 20110509
  Receipt Date: 20100505
  Transmission Date: 20111010
  Serious: No
  Sender: FDA-Public Use
  Company Number: US-ALEXION-A201000513

PATIENT
  Sex: Male

DRUGS (6)
  1. PLAVIX [Concomitant]
     Dosage: 75 MG, UNK
  2. SOLIRIS [Suspect]
     Indication: PAROXYSMAL NOCTURNAL HAEMOGLOBINURIA
     Dosage: LOWER DOSE FOR '5' INFUSIONS
     Route: 042
     Dates: start: 20090701, end: 20090101
  3. RAMIPRIL [Concomitant]
     Dosage: 5 MG, UNK
  4. METOPROLOL SUCCINATE [Concomitant]
     Dosage: 50 MG, UNK
  5. SOLIRIS [Suspect]
     Dosage: HIGHER DOSE
     Route: 042
     Dates: start: 20090101, end: 20091101
  6. ASPIRIN [Concomitant]
     Dosage: 81 MG, UNK

REACTIONS (11)
  - CONDITION AGGRAVATED [None]
  - CANDIDIASIS [None]
  - NASOPHARYNGITIS [None]
  - RESTLESS LEGS SYNDROME [None]
  - WEIGHT DECREASED [None]
  - FATIGUE [None]
  - DYSPHAGIA [None]
  - HEADACHE [None]
  - OROPHARYNGEAL PAIN [None]
  - URINE COLOUR ABNORMAL [None]
  - PRODUCTIVE COUGH [None]
